FAERS Safety Report 25433654 (Version 1)
Quarter: 2025Q2

REPORT INFORMATION
  Report Type: Spontaneous
  Country: US (occurrence: None)
  Receive Date: 20250613
  Receipt Date: 20250613
  Transmission Date: 20250716
  Serious: No
  Sender: MDD OPERATIONS
  Company Number: US-MDD US Operations-MDD202504-001213

PATIENT
  Age: 68 Year
  Sex: Female

DRUGS (9)
  1. APOKYN [Suspect]
     Active Substance: APOMORPHINE HYDROCHLORIDE
     Indication: Parkinson^s disease
     Dates: start: 20250410
  2. APOKYN [Suspect]
     Active Substance: APOMORPHINE HYDROCHLORIDE
     Dates: start: 202504
  3. APOKYN [Suspect]
     Active Substance: APOMORPHINE HYDROCHLORIDE
     Dates: start: 202504
  4. CARBIDOPA\LEVODOPA [Concomitant]
     Active Substance: CARBIDOPA\LEVODOPA
  5. RYTARY [Concomitant]
     Active Substance: CARBIDOPA\LEVODOPA
  6. PRAMIPEXOLE [Concomitant]
     Active Substance: PRAMIPEXOLE
  7. GOCOVRI [Concomitant]
     Active Substance: AMANTADINE
  8. INBRIJA [Concomitant]
     Active Substance: LEVODOPA
  9. CLONAZEPAM [Concomitant]
     Active Substance: CLONAZEPAM

REACTIONS (17)
  - Musculoskeletal stiffness [Recovering/Resolving]
  - Feeling cold [Recovered/Resolved]
  - Musculoskeletal stiffness [Recovered/Resolved]
  - Brain fog [Recovered/Resolved]
  - Eructation [Recovered/Resolved]
  - Tremor [Recovered/Resolved]
  - Dizziness [Recovering/Resolving]
  - Dyskinesia [Unknown]
  - Somnolence [Recovered/Resolved]
  - Yawning [Recovered/Resolved]
  - Injection site haemorrhage [Recovered/Resolved]
  - Nausea [Recovered/Resolved]
  - Dizziness [Recovered/Resolved]
  - Yawning [Recovered/Resolved]
  - Somnolence [Recovered/Resolved]
  - Nausea [Recovered/Resolved]
  - Therapeutic product effect delayed [Unknown]

NARRATIVE: CASE EVENT DATE: 20250401
